FAERS Safety Report 14245525 (Version 14)
Quarter: 2018Q3

REPORT INFORMATION
  Report Type: Spontaneous
  Country: US (occurrence: US)
  Receive Date: 20171203
  Receipt Date: 20180709
  Transmission Date: 20181010
  Serious: Yes (Other)
  Sender: FDA-Public Use
  Company Number: US-AMGEN-USASP2017177823

PATIENT
  Age: 61 Year
  Sex: Female
  Weight: 72.56 kg

DRUGS (17)
  1. MTX [Suspect]
     Active Substance: METHOTREXATE SODIUM
     Indication: RHEUMATOID ARTHRITIS
     Dosage: 20 MG, QWK
     Route: 048
     Dates: start: 201704, end: 2017
  2. MTX [Suspect]
     Active Substance: METHOTREXATE SODIUM
     Dosage: 15 MG, QD
     Route: 065
  3. PREDNISONE. [Concomitant]
     Active Substance: PREDNISONE
     Indication: RHEUMATOID ARTHRITIS
     Dosage: 10 MG, QD
  4. FOLIC ACID. [Concomitant]
     Active Substance: FOLIC ACID
     Dosage: 1 MG, QD
     Route: 048
     Dates: start: 20171201
  5. ENBREL [Suspect]
     Active Substance: ETANERCEPT
     Dosage: 50 MG, QWK
     Route: 065
     Dates: end: 20180610
  6. XELJANZ XR [Suspect]
     Active Substance: TOFACITINIB CITRATE
     Indication: RHEUMATOID ARTHRITIS
     Dosage: 11 MG, QD
     Route: 048
     Dates: start: 20171228
  7. ENBREL [Suspect]
     Active Substance: ETANERCEPT
     Indication: RHEUMATOID ARTHRITIS
     Dosage: 50 MG, QWK
     Route: 058
     Dates: start: 20171108, end: 201711
  8. ENBREL [Suspect]
     Active Substance: ETANERCEPT
     Dosage: 50 MG, QWK
     Route: 058
     Dates: start: 20171201, end: 20171228
  9. NAPROXEN. [Concomitant]
     Active Substance: NAPROXEN
     Indication: JOINT SWELLING
  10. HUMIRA [Suspect]
     Active Substance: ADALIMUMAB
     Indication: RHEUMATOID ARTHRITIS
     Dosage: 40 MG, Q2WK
     Route: 058
     Dates: start: 201801, end: 201803
  11. XELJANZ XR [Suspect]
     Active Substance: TOFACITINIB CITRATE
     Dosage: 11 MG, QD
     Route: 048
     Dates: start: 201801, end: 2018
  12. NAPROXEN. [Concomitant]
     Active Substance: NAPROXEN
     Indication: NODULE
     Dosage: UNK, AS NECESSARY
     Route: 065
  13. XELJANZ XR [Suspect]
     Active Substance: TOFACITINIB CITRATE
     Dosage: 11 MG, QD
     Route: 048
     Dates: start: 20180607
  14. SULFONAMIDE [Concomitant]
     Active Substance: UNSPECIFIED INGREDIENT
     Indication: PRODUCT USED FOR UNKNOWN INDICATION
     Dosage: UNK
     Route: 065
  15. PREDNISONE. [Concomitant]
     Active Substance: PREDNISONE
     Dosage: 5 MG, QD
     Route: 048
     Dates: start: 201704
  16. TYLENOL ARTHRITIS PAIN [Concomitant]
     Active Substance: ACETAMINOPHEN
     Dosage: 650 MG, AS NECESSARY (TAKE 2 TABLET BY ORAL ROUTE EVERY 4 HOURS AS NEEDED)
     Route: 048
     Dates: start: 20171201
  17. MTX [Suspect]
     Active Substance: METHOTREXATE SODIUM
     Dosage: 20 MG, QWK
     Route: 048
     Dates: start: 201712

REACTIONS (26)
  - Rheumatoid arthritis [Recovering/Resolving]
  - Swelling face [Unknown]
  - Injection site swelling [Recovering/Resolving]
  - Injection site erythema [Recovering/Resolving]
  - Lymphadenopathy [Unknown]
  - Myalgia [Unknown]
  - Hypoaesthesia [Unknown]
  - Pain [Unknown]
  - Drug effect decreased [Unknown]
  - Nodule [Not Recovered/Not Resolved]
  - Lacrimation increased [Unknown]
  - Urticaria [Unknown]
  - Injection site pruritus [Recovering/Resolving]
  - Vomiting [Unknown]
  - Heat oedema [Unknown]
  - Dyspnoea [Unknown]
  - Nausea [Unknown]
  - Malaise [Unknown]
  - Injection site bruising [Unknown]
  - Mobility decreased [Unknown]
  - Ocular hyperaemia [Unknown]
  - Eyelid oedema [Unknown]
  - Injection site urticaria [Unknown]
  - Paraesthesia [Unknown]
  - Scratch [Unknown]
  - Skin lesion [Unknown]

NARRATIVE: CASE EVENT DATE: 2017
